FAERS Safety Report 19183332 (Version 1)
Quarter: 2021Q2

REPORT INFORMATION
  Report Type: Spontaneous
  Country: US (occurrence: US)
  Receive Date: 20210427
  Receipt Date: 20210427
  Transmission Date: 20210717
  Serious: No
  Sender: FDA-Public Use
  Company Number: US-SA-2021SA136578

PATIENT
  Age: 56 Year
  Sex: Male

DRUGS (7)
  1. DUPILUMAB [Suspect]
     Active Substance: DUPILUMAB
     Dosage: 2 DF, Q15D
     Route: 058
     Dates: end: 20210318
  2. GEMFIBROZIL. [Concomitant]
     Active Substance: GEMFIBROZIL
  3. LISINOPRIL. [Concomitant]
     Active Substance: LISINOPRIL
  4. HALOBETASOL [Concomitant]
     Active Substance: HALOBETASOL PROPIONATE
  5. DUPILUMAB [Suspect]
     Active Substance: DUPILUMAB
     Indication: DERMATITIS ATOPIC
     Dosage: 2 DF
     Route: 058
     Dates: start: 20210318, end: 20210318
  6. RIFAMPIN. [Concomitant]
     Active Substance: RIFAMPIN
  7. ISONIAZID. [Concomitant]
     Active Substance: ISONIAZID

REACTIONS (2)
  - Product communication issue [Unknown]
  - Product use issue [Unknown]

NARRATIVE: CASE EVENT DATE: 20210402
